FAERS Safety Report 20833381 (Version 1)
Quarter: 2022Q2

REPORT INFORMATION
  Report Type: Spontaneous
  Country: US (occurrence: None)
  Receive Date: 20220515
  Receipt Date: 20220515
  Transmission Date: 20220720
  Serious: Yes (Other)
  Sender: FDA-Public Use
  Company Number: None

PATIENT
  Age: 66 Year
  Sex: Female
  Weight: 85.5 kg

DRUGS (13)
  1. VUITY [Suspect]
     Active Substance: PILOCARPINE HYDROCHLORIDE
     Indication: Presbyopia
     Dosage: OTHER QUANTITY : 1.5 DROP(S);?
     Route: 047
     Dates: start: 20220515, end: 20220515
  2. Spironlactone [Concomitant]
  3. METFORMIN [Concomitant]
     Active Substance: METFORMIN HYDROCHLORIDE
  4. CARVEDILOL [Concomitant]
     Active Substance: CARVEDILOL
  5. LIVALO [Concomitant]
     Active Substance: PITAVASTATIN CALCIUM
  6. PROZAC [Suspect]
     Active Substance: FLUOXETINE HYDROCHLORIDE
  7. BUPROPION [Concomitant]
     Active Substance: BUPROPION
  8. NALTREXONE [Concomitant]
     Active Substance: NALTREXONE
  9. clairinex [Concomitant]
  10. MONTELUKAST [Concomitant]
     Active Substance: MONTELUKAST SODIUM
  11. FOCUS [Concomitant]
  12. OMEGA 3 [Concomitant]
     Active Substance: CAPSAICIN
  13. VITAMIN B12 [Concomitant]
     Active Substance: CYANOCOBALAMIN

REACTIONS (3)
  - Dizziness [None]
  - Vision blurred [None]
  - Headache [None]

NARRATIVE: CASE EVENT DATE: 20220515
